FAERS Safety Report 4284331-4 (Version None)
Quarter: 2004Q1

REPORT INFORMATION
  Report Type: 
  Country: None (occurrence: None)
  Receive Date: 20040203
  Receipt Date: 20030411
  Transmission Date: 20041129
  Serious: Yes (Hospitalization)
  Sender: FDA-Public Use
  Company Number: WAES 0304USA01289

PATIENT
  Age: 60 Year
  Sex: Female
  Weight: 52 kg

DRUGS (9)
  1. TYLENOL (CAPLET) [Concomitant]
  2. AMITRIPTYLINE HYDROCHLORIDE [Concomitant]
     Indication: DEPRESSION
  3. LOTREL [Concomitant]
     Indication: HYPERTENSION
  4. PREMARIN [Concomitant]
     Indication: HORMONE REPLACEMENT THERAPY
  5. LOPRESSOR [Concomitant]
     Indication: HYPERTENSION
  6. PRILOSEC [Concomitant]
     Indication: ABDOMINAL DISCOMFORT
  7. RABEPRAZOLE SODIUM [Concomitant]
     Indication: GASTROOESOPHAGEAL REFLUX DISEASE
  8. VIOXX [Suspect]
     Indication: BACK PAIN
     Route: 048
     Dates: start: 20010701, end: 20010101
  9. VIOXX [Suspect]
     Indication: MIGRAINE
     Route: 048
     Dates: start: 20010701, end: 20010101

REACTIONS (9)
  - ADVERSE EVENT [None]
  - CEREBROVASCULAR ACCIDENT [None]
  - COUGH [None]
  - GASTRIC DISORDER [None]
  - HYPERTENSION [None]
  - INJURY [None]
  - OVERDOSE [None]
  - STRESS SYMPTOMS [None]
  - TRICUSPID VALVE INCOMPETENCE [None]
